FAERS Safety Report 9096536 (Version 1)
Quarter: 2013Q1

REPORT INFORMATION
  Report Type: Spontaneous
  Country: DE (occurrence: DE)
  Receive Date: 20130211
  Receipt Date: 20130211
  Transmission Date: 20140127
  Serious: Yes (Other)
  Sender: FDA-Public Use
  Company Number: DE-AMGEN-DEUSP2013008822

PATIENT
  Sex: Female

DRUGS (9)
  1. ENBREL [Suspect]
     Indication: RHEUMATOID ARTHRITIS
     Dosage: 50 MG, WEEKLY
     Dates: start: 20091001
  2. MTX                                /00113802/ [Concomitant]
     Dosage: 7.5 MG, WEEKLY
  3. CORTISONE [Concomitant]
     Dosage: 4 MG, DAILY
  4. LOSARTAN [Concomitant]
     Dosage: 100 MG, UNK
  5. IBUPROFEN [Concomitant]
     Dosage: 800 MG, 2X/DAY
  6. IBUPROFEN [Concomitant]
     Dosage: 600 MG, 3X/DAY
  7. EUTHYROX [Concomitant]
     Dosage: 88 MG, UNK
  8. FOLIC ACID [Concomitant]
     Dosage: UNK UNK, UNK
  9. PANTOZOL [Concomitant]
     Dosage: UNK UNK, UNK

REACTIONS (4)
  - Spinal osteoarthritis [Not Recovered/Not Resolved]
  - Hyperhidrosis [Not Recovered/Not Resolved]
  - Headache [Not Recovered/Not Resolved]
  - Sleep disorder [Unknown]
